FAERS Safety Report 8592554-9 (Version None)
Quarter: 2012Q3

REPORT INFORMATION
  Report Type: 
  Country: None (occurrence: None)
  Receive Date: 20120814
  Receipt Date: 20120801
  Transmission Date: 20120928
  Serious: Yes (Hospitalization, Other)
  Sender: FDA-Public Use
  Company Number: US-009507513-1208USA001664

PATIENT

DRUGS (2)
  1. REMERON [Suspect]
     Indication: ANTIDEPRESSANT THERAPY
  2. OLANZAPINE [Interacting]
     Indication: ANTIDEPRESSANT THERAPY

REACTIONS (2)
  - DRUG INTERACTION [None]
  - SEROTONIN SYNDROME [None]
